FAERS Safety Report 21286864 (Version 1)
Quarter: 2022Q3

REPORT INFORMATION
  Report Type: Report from Study
  Country: US (occurrence: US)
  Receive Date: 20220902
  Receipt Date: 20220902
  Transmission Date: 20221027
  Serious: Yes (Hospitalization, Other)
  Sender: FDA-Public Use
  Company Number: US-BRISTOL-MYERS SQUIBB COMPANY-2022-096836

PATIENT
  Age: 70 Year
  Sex: Female
  Weight: 62 kg

DRUGS (2)
  1. AZACITIDINE [Suspect]
     Active Substance: AZACITIDINE
     Indication: Acute myeloid leukaemia
     Dosage: 1-5 Q 29 DAYS
     Route: 042
     Dates: start: 20220711, end: 20220715
  2. AZACITIDINE [Suspect]
     Active Substance: AZACITIDINE
     Indication: Myelodysplastic syndrome
     Dosage: DOSE 75; FREQUENCY: 1-5 @ 28 DAYS
     Route: 058
     Dates: start: 20220404, end: 20220408

REACTIONS (5)
  - Bacteraemia [Recovered/Resolved]
  - Febrile neutropenia [Recovered/Resolved]
  - Off label use [Unknown]
  - Clostridial infection [Unknown]
  - Cellulitis staphylococcal [Unknown]

NARRATIVE: CASE EVENT DATE: 20220716
